FAERS Safety Report 16296023 (Version 3)
Quarter: 2019Q4

REPORT INFORMATION
  Report Type: Spontaneous
  Country: US (occurrence: US)
  Receive Date: 20190509
  Receipt Date: 20191121
  Transmission Date: 20200122
  Serious: Yes (Hospitalization, Other)
  Sender: FDA-Public Use
  Company Number: US-SA-2019SA123322

PATIENT
  Age: 19 Year
  Sex: Female

DRUGS (1)
  1. CABLIVI [Suspect]
     Active Substance: CAPLACIZUMAB-YHDP
     Indication: THROMBOTIC THROMBOCYTOPENIC PURPURA
     Route: 058

REACTIONS (6)
  - Arthralgia [Unknown]
  - Bone pain [Unknown]
  - Hypersensitivity [Unknown]
  - Haemolytic anaemia [Unknown]
  - Hospitalisation [Unknown]
  - Chest pain [Unknown]

NARRATIVE: CASE EVENT DATE: 20190410
